FAERS Safety Report 11270624 (Version 21)
Quarter: 2017Q4

REPORT INFORMATION
  Report Type: Report from Study
  Country: CO (occurrence: CO)
  Receive Date: 20150714
  Receipt Date: 20171016
  Transmission Date: 20180320
  Serious: Yes (Hospitalization, Other)
  Sender: FDA-Public Use
  Company Number: PHHY2015CO084036

PATIENT
  Age: 70 Year
  Sex: Female
  Weight: 74 kg

DRUGS (13)
  1. ATORVASTATIN [Suspect]
     Active Substance: ATORVASTATIN
     Indication: PRODUCT USED FOR UNKNOWN INDICATION
     Dosage: 50 MG, QD
     Route: 048
  2. ACETYLSALICYLIC ACID [Concomitant]
     Active Substance: ASPIRIN
     Indication: PRODUCT USED FOR UNKNOWN INDICATION
     Dosage: 100 MG, QD
     Route: 048
  3. ESOMEPRAZOLE [Concomitant]
     Active Substance: ESOMEPRAZOLE
     Indication: GASTRITIS
     Dosage: 40 MG, QD
     Route: 048
  4. HYDROCHLOROTHIAZIDE. [Concomitant]
     Active Substance: HYDROCHLOROTHIAZIDE
     Indication: PRODUCT USED FOR UNKNOWN INDICATION
     Dosage: 25 MG, QD
     Route: 048
  5. METOPROLOL. [Concomitant]
     Active Substance: METOPROLOL
     Indication: PRODUCT USED FOR UNKNOWN INDICATION
     Dosage: 50 MG, Q12H, ALSO REPORTED AS TWICE A DAY
     Route: 048
  6. TASIGNA [Suspect]
     Active Substance: NILOTINIB
     Indication: CHRONIC MYELOID LEUKAEMIA
     Dosage: 2 DF, 150 MG, Q12H (2 CAPSULES OF 150 MG EVERY 12 HOURS)
     Route: 048
     Dates: start: 20150223, end: 201701
  7. CLOPIDOGREL [Concomitant]
     Active Substance: CLOPIDOGREL BISULFATE
     Indication: PRODUCT USED FOR UNKNOWN INDICATION
     Dosage: 75 MG, QD
     Route: 048
  8. LOSARTAN. [Suspect]
     Active Substance: LOSARTAN
     Indication: PRODUCT USED FOR UNKNOWN INDICATION
     Dosage: 50 MG, Q12H, ALSO REPORTED AS TWICE A DAY
     Route: 048
  9. NILOTINIB [Concomitant]
     Active Substance: NILOTINIB
     Indication: PRODUCT USED FOR UNKNOWN INDICATION
     Route: 065
  10. SUCRALFATE. [Concomitant]
     Active Substance: SUCRALFATE
     Indication: GASTRITIS
     Dosage: 1 MG, QD
     Route: 048
  11. TASIGNA [Suspect]
     Active Substance: NILOTINIB
     Dosage: 2 DF, Q12H (2 CAPSULES OF 150 MG EVERY 12 HOURS))
     Route: 048
     Dates: start: 20170401
  12. CARVEDILOL. [Suspect]
     Active Substance: CARVEDILOL
     Indication: PRODUCT USED FOR UNKNOWN INDICATION
     Dosage: UNK
     Route: 065
  13. BECLOMETHASONE [Concomitant]
     Active Substance: BECLOMETHASONE
     Indication: PRODUCT USED FOR UNKNOWN INDICATION
     Dosage: UNK
     Route: 065

REACTIONS (42)
  - Angina unstable [Unknown]
  - Dyspnoea [Unknown]
  - Road traffic accident [Unknown]
  - Dizziness [Unknown]
  - Pyrexia [Unknown]
  - Cardiac failure [Unknown]
  - Vaginal haemorrhage [Unknown]
  - Infarction [Unknown]
  - Balance disorder [Unknown]
  - Diabetic complication [Unknown]
  - Vision blurred [Unknown]
  - Drug ineffective [Unknown]
  - Pain [Unknown]
  - Psychiatric symptom [Unknown]
  - Feeling abnormal [Unknown]
  - Hypoaesthesia [Unknown]
  - Peripheral swelling [Unknown]
  - Angina pectoris [Not Recovered/Not Resolved]
  - Intracranial aneurysm [Unknown]
  - Anxiety [Unknown]
  - Hepatomegaly [Unknown]
  - Myocardial infarction [Unknown]
  - Feeling drunk [Unknown]
  - Gait disturbance [Unknown]
  - Blood glucose increased [Unknown]
  - Swelling [Unknown]
  - Blindness [Unknown]
  - Chest pain [Not Recovered/Not Resolved]
  - Decreased immune responsiveness [Unknown]
  - Infection [Unknown]
  - Depressed mood [Unknown]
  - Pneumonia [Unknown]
  - Pain in extremity [Unknown]
  - Venous occlusion [Unknown]
  - Bone pain [Unknown]
  - Cytogenetic analysis abnormal [Unknown]
  - Contusion [Unknown]
  - Malaise [Unknown]
  - Nervousness [Unknown]
  - Arthralgia [Unknown]
  - Discomfort [Unknown]
  - Headache [Unknown]

NARRATIVE: CASE EVENT DATE: 201507
